FAERS Safety Report 4551820-4 (Version None)
Quarter: 2005Q1

REPORT INFORMATION
  Report Type: 
  Country: None (occurrence: None)
  Receive Date: 20050110
  Receipt Date: 20041230
  Transmission Date: 20050727
  Serious: Yes (Life-Threatening, Hospitalization)
  Sender: FDA-Public Use
  Company Number: 2004-12-1330

PATIENT
  Age: 40 Year
  Sex: Male

DRUGS (1)
  1. INTRON A [Suspect]
     Indication: MALIGNANT MELANOMA
     Dosage: 20 MIU TIW SUBCUTANEOUS
     Route: 058
     Dates: start: 20040501

REACTIONS (2)
  - ANAPHYLACTIC SHOCK [None]
  - RASH MORBILLIFORM [None]
